FAERS Safety Report 20185497 (Version 1)
Quarter: 2021Q4

REPORT INFORMATION
  Report Type: Spontaneous
  Country: US (occurrence: US)
  Receive Date: 20211215
  Receipt Date: 20211215
  Transmission Date: 20220303
  Serious: Yes (Other)
  Sender: FDA-Public Use
  Company Number: US-SPECGX-T201603229

PATIENT
  Sex: Male
  Weight: 79 kg

DRUGS (5)
  1. FENTANYL TRANSDERMAL SYSTEM [Suspect]
     Active Substance: FENTANYL
     Indication: Cancer pain
     Dosage: ONE PATCH EVERY 3 DAY
     Route: 062
     Dates: start: 2015
  2. FENTANYL TRANSDERMAL SYSTEM [Suspect]
     Active Substance: FENTANYL
     Dosage: ONE PATCH, EVERY 3 DAYS
     Route: 062
     Dates: start: 2015
  3. FENTANYL TRANSDERMAL SYSTEM [Suspect]
     Active Substance: FENTANYL
     Indication: Cancer pain
     Dosage: 100 MCG, EVERY 2 DAYS
     Route: 062
     Dates: start: 2020
  4. POMALYST [Concomitant]
     Active Substance: POMALIDOMIDE
     Indication: Neoplasm malignant
     Dosage: UNK
     Route: 065
  5. ASPIRIN [Concomitant]
     Active Substance: ASPIRIN
     Indication: Product used for unknown indication
     Dosage: 4 MILLIGRAM, QID
     Route: 065

REACTIONS (8)
  - Breathing-related sleep disorder [Unknown]
  - Respiratory rate decreased [Unknown]
  - Drug intolerance [Unknown]
  - Dyspnoea [Unknown]
  - Insomnia [Unknown]
  - Drug withdrawal syndrome [Unknown]
  - Product quality issue [Unknown]
  - Drug ineffective [Unknown]

NARRATIVE: CASE EVENT DATE: 20150101
